FAERS Safety Report 7920737 (Version 6)
Quarter: 2012Q4

REPORT INFORMATION
  Report Type: 
  Country: US (occurrence: US)
  Receive Date: 20110429
  Receipt Date: 20121228
  Transmission Date: 20130627
  Serious: No
  Sender: FDA-Public Use
  Company Number: US-ASTRAZENECA-2010SE15509

PATIENT
  Age: 56 Year
  Sex: Male

DRUGS (2)
  1. NEXIUM [Suspect]
     Route: 048
  2. PRILOSEC [Suspect]
     Route: 048

REACTIONS (22)
  - Gastrooesophageal reflux disease [Unknown]
  - Hernia [Unknown]
  - Anxiety [Unknown]
  - Hepatic cirrhosis [Unknown]
  - Gastric disorder [Unknown]
  - Faeces discoloured [Unknown]
  - Gastrointestinal disorder [Unknown]
  - Pain [Unknown]
  - Disturbance in attention [Unknown]
  - Mental disorder [Unknown]
  - Schizophrenia [Unknown]
  - Emphysema [Unknown]
  - Skin disorder [Unknown]
  - Dyspepsia [Unknown]
  - Dyspepsia [Unknown]
  - Depression [Unknown]
  - Abdominal pain [Unknown]
  - Malaise [Unknown]
  - Diarrhoea [Unknown]
  - Vomiting [Unknown]
  - Drug dose omission [Unknown]
  - Intentional drug misuse [Unknown]
